FAERS Safety Report 10545714 (Version 1)
Quarter: 2014Q4

REPORT INFORMATION
  Report Type: Report from Study
  Country: US (occurrence: US)
  Receive Date: 20141027
  Receipt Date: 20141027
  Transmission Date: 20150529
  Serious: No
  Sender: FDA-Public Use
  Company Number: US-ABBVIE-14P-163-1243695-00

PATIENT
  Sex: Female
  Weight: 72.64 kg

DRUGS (3)
  1. IRON [Concomitant]
     Active Substance: IRON
     Indication: PRODUCT USED FOR UNKNOWN INDICATION
  2. LUPRON DEPOT [Suspect]
     Active Substance: LEUPROLIDE ACETATE
     Indication: UTERINE LEIOMYOMA
     Route: 030
     Dates: start: 20140508
  3. ZYRTEC [Concomitant]
     Active Substance: CETIRIZINE HYDROCHLORIDE
     Indication: HYPERSENSITIVITY

REACTIONS (7)
  - Extrasystoles [Recovering/Resolving]
  - Anaemia [Unknown]
  - Blood pressure increased [Recovering/Resolving]
  - Arthralgia [Recovering/Resolving]
  - Eye pain [Recovering/Resolving]
  - Bone pain [Recovering/Resolving]
  - Headache [Recovering/Resolving]
